FAERS Safety Report 6565388-4 (Version None)
Quarter: 2010Q1

REPORT INFORMATION
  Report Type: 
  Country: None (occurrence: None)
  Receive Date: 20100201
  Receipt Date: 20100118
  Transmission Date: 20100710
  Serious: Yes (Other)
  Sender: FDA-Public Use
  Company Number: DE-MYLANLABS-2010S1000881

PATIENT
  Age: 51 Year
  Sex: Female

DRUGS (4)
  1. CITALOPRAM [Suspect]
     Indication: DEPRESSION
     Route: 048
     Dates: start: 20091224, end: 20091224
  2. RASAGILINE [Suspect]
     Indication: PARKINSON'S DISEASE
     Route: 048
     Dates: start: 20060208
  3. LEVOTHYROXINE SODIUM [Concomitant]
     Indication: HYPOTHYROIDISM
     Route: 048
  4. ROTIGOTINE [Concomitant]
     Indication: PARKINSON'S DISEASE
     Route: 062

REACTIONS (4)
  - CONFUSIONAL STATE [None]
  - DYSSTASIA [None]
  - NEUROTOXICITY [None]
  - VOMITING [None]
